FAERS Safety Report 7467282-3 (Version None)
Quarter: 2011Q2

REPORT INFORMATION
  Report Type: 
  Country: None (occurrence: None)
  Receive Date: 20110428
  Receipt Date: 20110413
  Transmission Date: 20111010
  Serious: Yes (Hospitalization)
  Sender: FDA-Public Use
  Company Number: 2011MA003842

PATIENT
  Age: 47 Year
  Sex: Female

DRUGS (3)
  1. CALCIUM CARBONATE [Concomitant]
  2. IBUPROFEN [Suspect]
     Indication: PRODUCT USED FOR UNKNOWN INDICATION
     Dosage: 3600 MG, OD, PO
     Route: 048
  3. OTC WEIGHT LOSS SUPPLEMENT [Concomitant]

REACTIONS (6)
  - CONFUSIONAL STATE [None]
  - MEMORY IMPAIRMENT [None]
  - ASTHENIA [None]
  - RENAL FAILURE [None]
  - DIZZINESS [None]
  - MILK-ALKALI SYNDROME [None]
